FAERS Safety Report 8049285 (Version 2)
Quarter: 2013Q2

REPORT INFORMATION
  Report Type: Report from Study
  Country: MX (occurrence: MX)
  Receive Date: 20110722
  Receipt Date: 20130609
  Transmission Date: 20140414
  Serious: Yes (Hospitalization)
  Sender: FDA-Public Use
  Company Number: PHHY2011MX61169

PATIENT
  Age: 81 Year
  Sex: Male

DRUGS (2)
  1. EXFORGE [Suspect]
     Indication: HYPERTENSION
     Dosage: 160 MG VALSARTAN AND 5 MG AMLODIPINE, DAILY
     Dates: start: 20060707
  2. LIPITOR [Concomitant]

REACTIONS (2)
  - Cataract [Recovering/Resolving]
  - Eye disorder [Recovering/Resolving]
